FAERS Safety Report 7207368-1 (Version None)
Quarter: 2010Q4

REPORT INFORMATION
  Report Type: 
  Country: None (occurrence: None)
  Receive Date: 20101221
  Receipt Date: 20101206
  Transmission Date: 20110411
  Serious: Yes (Other)
  Sender: FDA-Public Use
  Company Number: DSJ-2010-21693

PATIENT
  Age: 57 Year
  Sex: Female

DRUGS (1)
  1. AMLODIPINE BESYLATE AND OLMESARTAN MEDOXOMIL [Suspect]
     Indication: HYPERTENSION
     Dosage: 40/10MG (1 IN 1 D), PER ORAL
     Route: 048
     Dates: start: 20100601

REACTIONS (3)
  - ANGINA PECTORIS [None]
  - DYSPNOEA [None]
  - FATIGUE [None]
